FAERS Safety Report 5215432-1 (Version None)
Quarter: 2007Q1

REPORT INFORMATION
  Report Type: 
  Country: None (occurrence: None)
  Receive Date: 20070123
  Receipt Date: 20070112
  Transmission Date: 20070707
  Serious: Yes (Death)
  Sender: FDA-Public Use
  Company Number: DE-ABBOTT-07P-062-0355683-00

PATIENT
  Sex: Male
  Weight: 61 kg

DRUGS (1)
  1. KALETRA [Suspect]
     Indication: HIV INFECTION
     Route: 048
     Dates: start: 20050510, end: 20061121

REACTIONS (2)
  - ADENOCARCINOMA [None]
  - CACHEXIA [None]
